FAERS Safety Report 8515246-0 (Version None)
Quarter: 2012Q3

REPORT INFORMATION
  Report Type: 
  Country: None (occurrence: None)
  Receive Date: 20120717
  Receipt Date: 20120716
  Transmission Date: 20120928
  Serious: Yes (Other)
  Sender: FDA-Public Use
  Company Number: CN-ROCHE-1088277

PATIENT
  Age: 67 Year
  Sex: Male
  Weight: 45 kg

DRUGS (1)
  1. CAPECITABINE [Suspect]
     Indication: GASTRIC CANCER
     Route: 048
     Dates: start: 20120608

REACTIONS (2)
  - CARBOHYDRATE ANTIGEN 19-9 INCREASED [None]
  - CARCINOEMBRYONIC ANTIGEN INCREASED [None]
